FAERS Safety Report 7990260-2 (Version None)
Quarter: 2011Q4

REPORT INFORMATION
  Report Type: 
  Country: None (occurrence: None)
  Receive Date: 20111219
  Receipt Date: 20110215
  Transmission Date: 20120403
  Serious: No
  Sender: FDA-Public Use
  Company Number: US-ASTRAZENECA-2011SE08775

PATIENT
  Age: 70 Year
  Sex: Female

DRUGS (3)
  1. CRESTOR [Suspect]
     Route: 048
     Dates: start: 20100601
  2. ACETAMINOPHEN [Concomitant]
  3. MUSCLE RELAXER [Concomitant]

REACTIONS (2)
  - COUGH [None]
  - MUSCLE SPASMS [None]
